FAERS Safety Report 6960528-7 (Version None)
Quarter: 2010Q3

REPORT INFORMATION
  Report Type: 
  Country: None (occurrence: None)
  Receive Date: 20100826
  Receipt Date: 20100818
  Transmission Date: 20110219
  Serious: Yes (Other)
  Sender: FDA-Public Use
  Company Number: 2010SP042643

PATIENT
  Age: 54 Year
  Sex: Female
  Weight: 61 kg

DRUGS (1)
  1. DIPROSPAN (BETAMETHASONE SODIUM PHOSPHATE/DIPROPIONATE) (BETAMETHASONE [Suspect]
     Indication: DERMATITIS ALLERGIC
     Dosage: 1 ML; ONCE; IV
     Route: 042
     Dates: start: 20100706, end: 20100706

REACTIONS (1)
  - ANAPHYLACTOID REACTION [None]
